FAERS Safety Report 24719618 (Version 1)
Quarter: 2024Q4

REPORT INFORMATION
  Report Type: Spontaneous
  Country: IT (occurrence: IT)
  Receive Date: 20241211
  Receipt Date: 20241211
  Transmission Date: 20250115
  Serious: Yes (Other)
  Sender: BIOLOGICAL E. LIMITED
  Company Number: IT-BELUSA-2024BELLIT0117

PATIENT

DRUGS (2)
  1. HEPARIN SODIUM [Suspect]
     Active Substance: HEPARIN SODIUM
     Indication: Deep vein thrombosis
  2. HEPARIN SODIUM [Suspect]
     Active Substance: HEPARIN SODIUM
     Indication: Pulmonary embolism

REACTIONS (3)
  - Haemorrhagic infarction [Unknown]
  - Shock haemorrhagic [Unknown]
  - Haematoma [Unknown]
